FAERS Safety Report 23330414 (Version 2)
Quarter: 2023Q4

REPORT INFORMATION
  Report Type: Spontaneous
  Country: IN (occurrence: IN)
  Receive Date: 20231222
  Receipt Date: 20231229
  Transmission Date: 20240109
  Serious: Yes (Other)
  Sender: FDA-Public Use
  Company Number: IN-002147023-NVSC2023IN267362

PATIENT
  Sex: Male

DRUGS (2)
  1. RANIBIZUMAB [Suspect]
     Active Substance: RANIBIZUMAB
     Indication: Diabetic retinal oedema
     Dosage: UNK
     Route: 050
  2. RANIBIZUMAB [Suspect]
     Active Substance: RANIBIZUMAB
     Dosage: UNK (IN LEFT AND RIGHT EYE)
     Route: 050
     Dates: start: 20231020

REACTIONS (7)
  - Visual impairment [Unknown]
  - Glaucomatous optic neuropathy [Unknown]
  - Open angle glaucoma [Unknown]
  - Cystoid macular oedema [Unknown]
  - Cataract [Unknown]
  - Diabetic retinopathy [Unknown]
  - Diabetic retinal oedema [Unknown]
